FAERS Safety Report 5825079-1 (Version None)
Quarter: 2008Q3

REPORT INFORMATION
  Report Type: 
  Country: None (occurrence: None)
  Receive Date: 20080724
  Receipt Date: 20080724
  Transmission Date: 20090109
  Serious: Yes (Life-Threatening, Hospitalization)
  Sender: FDA-Public Use
  Company Number: None

PATIENT
  Age: 52 Year
  Sex: Female
  Weight: 65.7716 kg

DRUGS (4)
  1. AVELOX [Suspect]
     Indication: SINUSITIS
     Dosage: 400MG TAB 1 QD PO
     Route: 048
     Dates: start: 20080112
  2. AVELOX [Suspect]
     Indication: SINUSITIS
     Dosage: 400MG TAB 1 QD PO
     Route: 048
     Dates: start: 20080113
  3. AVELOX [Suspect]
     Indication: SINUSITIS
     Dosage: 400MG TAB 1 QD PO
     Route: 048
     Dates: start: 20080114
  4. AVELOX [Suspect]
     Indication: SINUSITIS
     Dosage: 400MG TAB 1 QD PO
     Route: 048
     Dates: start: 20080115

REACTIONS (6)
  - ABDOMINAL PAIN [None]
  - CHILLS [None]
  - DECREASED APPETITE [None]
  - DIARRHOEA [None]
  - DYSGEUSIA [None]
  - PYREXIA [None]
